FAERS Safety Report 15159230 (Version 1)
Quarter: 2018Q3

REPORT INFORMATION
  Report Type: Spontaneous
  Country: IT (occurrence: IT)
  Receive Date: 20180718
  Receipt Date: 20180718
  Transmission Date: 20181010
  Serious: Yes (Hospitalization)
  Sender: FDA-Public Use
  Company Number: IT-SA-2018SA186118

PATIENT
  Age: 79 Year
  Sex: Male

DRUGS (8)
  1. PLAVIX [Suspect]
     Active Substance: CLOPIDOGREL BISULFATE
     Indication: THROMBOSIS PROPHYLAXIS
     Dosage: 75 MG, QD
     Route: 048
     Dates: start: 20170101, end: 20171128
  2. LANSOX [Concomitant]
     Active Substance: LANSOPRAZOLE
  3. TILDIEM [Concomitant]
     Active Substance: DILTIAZEM HYDROCHLORIDE
  4. KANRENOL [Concomitant]
     Active Substance: CANRENOATE POTASSIUM
  5. LASIX [Concomitant]
     Active Substance: FUROSEMIDE
  6. ZYLORIC [Concomitant]
     Active Substance: ALLOPURINOL
  7. CARDIOASPIRIN [Suspect]
     Active Substance: ASPIRIN
     Indication: THROMBOSIS PROPHYLAXIS
     Dosage: 100 MG, QD
     Route: 048
     Dates: start: 20170101, end: 20171128
  8. SPIRIVA [Concomitant]
     Active Substance: TIOTROPIUM BROMIDE MONOHYDRATE

REACTIONS (4)
  - Melaena [Unknown]
  - Rectal haemorrhage [Unknown]
  - Presyncope [Unknown]
  - Anaemia [Unknown]

NARRATIVE: CASE EVENT DATE: 20171128
